FAERS Safety Report 5707077-1 (Version None)
Quarter: 2008Q2

REPORT INFORMATION
  Report Type: 
  Country: None (occurrence: None)
  Receive Date: 20080414
  Receipt Date: 20080414
  Transmission Date: 20081010
  Serious: Yes (Other)
  Sender: FDA-Public Use
  Company Number: None

PATIENT
  Age: 23 Year
  Sex: Male
  Weight: 72.5755 kg

DRUGS (3)
  1. AMOXICILLIN [Suspect]
     Indication: PAIN
     Dosage: 1  1  PO
     Route: 048
     Dates: start: 20080227, end: 20080227
  2. AMOXICILLIN [Suspect]
     Indication: PHARYNGOLARYNGEAL PAIN
     Dosage: 1  1  PO
     Route: 048
     Dates: start: 20080227, end: 20080227
  3. AMOXICILLIN [Suspect]
     Indication: PYREXIA
     Dosage: 1  1  PO
     Route: 048
     Dates: start: 20080227, end: 20080227

REACTIONS (1)
  - HYPERSENSITIVITY [None]
